FAERS Safety Report 4355519-9 (Version None)
Quarter: 2004Q2

REPORT INFORMATION
  Report Type: 
  Country: None (occurrence: None)
  Receive Date: 20040503
  Receipt Date: 20030721
  Transmission Date: 20050107
  Serious: Yes (Hospitalization)
  Sender: FDA-Public Use
  Company Number: PHEH2003US05580

PATIENT
  Age: 67 Year
  Sex: Male

DRUGS (2)
  1. LOTREL [Suspect]
     Dosage: QD
  2. INDERAL LA [Concomitant]

REACTIONS (2)
  - ANGIONEUROTIC OEDEMA [None]
  - TONGUE OEDEMA [None]
